FAERS Safety Report 7816708-1 (Version None)
Quarter: 2011Q4

REPORT INFORMATION
  Report Type: 
  Country: None (occurrence: None)
  Receive Date: 20111017
  Receipt Date: 20111011
  Transmission Date: 20120403
  Serious: Yes (Other)
  Sender: FDA-Public Use
  Company Number: US-PFIZER INC-2011242792

PATIENT
  Sex: Female
  Weight: 113.38 kg

DRUGS (3)
  1. LYRICA [Suspect]
     Dosage: 700 MG, 1X/DAY
     Route: 048
     Dates: start: 20080101
  2. METHADONE [Concomitant]
     Indication: DRUG DEPENDENCE
     Dosage: 120 MG DAILY
     Dates: start: 20080101
  3. LYRICA [Suspect]
     Indication: ANXIETY
     Dosage: 50 MG, 2X/DAY
     Route: 048
     Dates: start: 20080101

REACTIONS (6)
  - MALAISE [None]
  - FEELING ABNORMAL [None]
  - INSOMNIA [None]
  - ANXIETY [None]
  - FLUID RETENTION [None]
  - VOMITING [None]
